FAERS Safety Report 23878086 (Version 1)
Quarter: 2024Q2

REPORT INFORMATION
  Report Type: Spontaneous
  Country: NL (occurrence: NL)
  Receive Date: 20240521
  Receipt Date: 20240521
  Transmission Date: 20240716
  Serious: Yes (Other)
  Sender: FDA-Public Use
  Company Number: None

PATIENT
  Age: 63 Year
  Sex: Male
  Weight: 87.8 kg

DRUGS (12)
  1. SPIRONOLACTONE [Suspect]
     Active Substance: SPIRONOLACTONE
     Indication: Hypertension
     Dosage: 1DD 125MG
     Dates: start: 20221214, end: 20240409
  2. FUROSEMIDE [Concomitant]
     Active Substance: FUROSEMIDE
     Dosage: STRENGTH: 40 MG
  3. LEVETIRACETAM [Concomitant]
     Active Substance: LEVETIRACETAM
     Dosage: STRENGTH : 500 MG
  4. RIFAXIMIN [Concomitant]
     Active Substance: RIFAXIMIN
     Dosage: STRENGTH: 550 MG
  5. LACTULOSE [Concomitant]
     Active Substance: LACTULOSE
     Dosage: STRENGTH: 250 MG/G
  6. INSULIN GLARGINE [Concomitant]
     Active Substance: INSULIN GLARGINE
     Dosage: 100 UNITS/ML
  7. LACTITOL [Concomitant]
     Active Substance: LACTITOL
     Dosage: 10 G
  8. DALTEPARIN [Concomitant]
     Active Substance: DALTEPARIN
     Dosage: 12,500 IU/ML
  9. CARVEDILOL [Concomitant]
     Active Substance: CARVEDILOL
     Dosage: 12.5 MG
  10. ESOMEPRAZOLE [Concomitant]
     Active Substance: ESOMEPRAZOLE
     Dosage: 20 MG
  11. LACTULOSE [Concomitant]
     Active Substance: LACTULOSE
     Dosage: 670 MG/ML
  12. INSULIN ASPART [Concomitant]
     Active Substance: INSULIN ASPART
     Dosage: 100 UNITS/ML

REACTIONS (1)
  - Hypokalaemia [Recovered/Resolved]
